FAERS Safety Report 12254127 (Version 1)
Quarter: 2016Q2

REPORT INFORMATION
  Report Type: Spontaneous
  Country: SE (occurrence: SE)
  Receive Date: 20160411
  Receipt Date: 20160411
  Transmission Date: 20160815
  Serious: Yes (Death, Other)
  Sender: FDA-Public Use
  Company Number: SE-JNJFOC-20160315521

PATIENT
  Age: 90 Year
  Sex: Male
  Weight: 77 kg

DRUGS (3)
  1. XARELTO [Suspect]
     Active Substance: RIVAROXABAN
     Indication: CEREBROVASCULAR ACCIDENT PROPHYLAXIS
     Route: 048
     Dates: start: 20141031, end: 20151107
  2. HEPARIN [Concomitant]
     Active Substance: HEPARIN SODIUM
     Dosage: TOTAL DAILY DOSE 10000
     Route: 065
     Dates: start: 20150929, end: 20151007
  3. XARELTO [Suspect]
     Active Substance: RIVAROXABAN
     Indication: ATRIAL FIBRILLATION
     Route: 048
     Dates: start: 20141031, end: 20151107

REACTIONS (3)
  - Pneumonia [Fatal]
  - Haemorrhage [Unknown]
  - Internal haemorrhage [Unknown]

NARRATIVE: CASE EVENT DATE: 20151107
